FAERS Safety Report 24098956 (Version 1)
Quarter: 2024Q3

REPORT INFORMATION
  Report Type: Report from Study
  Country: US (occurrence: US)
  Receive Date: 20240716
  Receipt Date: 20240716
  Transmission Date: 20241016
  Serious: Yes (Other)
  Sender: ABBVIE
  Company Number: US-ABBVIE-5837236

PATIENT
  Age: 88 Year
  Sex: Male

DRUGS (2)
  1. LUPRON [Suspect]
     Active Substance: LEUPROLIDE ACETATE
     Indication: Product used for unknown indication
     Route: 065
  2. ENZALUTAMIDE [Suspect]
     Active Substance: ENZALUTAMIDE
     Indication: Product used for unknown indication
     Dosage: LAST ADMIN DATE 2024?160MG (80MG TWICE)
     Route: 065
     Dates: start: 20240312

REACTIONS (4)
  - Prostatic operation [Unknown]
  - Malaise [Unknown]
  - Dizziness [Unknown]
  - Prostatic specific antigen decreased [Unknown]

NARRATIVE: CASE EVENT DATE: 20240620
